FAERS Safety Report 25508646 (Version 1)
Quarter: 2025Q3

REPORT INFORMATION
  Report Type: Spontaneous
  Country: US (occurrence: US)
  Receive Date: 20250703
  Receipt Date: 20250703
  Transmission Date: 20251021
  Serious: No
  Sender: ASTELLAS
  Company Number: US-ASTELLAS-2022US035879

PATIENT
  Age: 71 Year
  Sex: Male

DRUGS (6)
  1. XTANDI [Suspect]
     Active Substance: ENZALUTAMIDE
     Indication: Product used for unknown indication
     Dosage: 160 MG, ONCE DAILY
     Route: 048
  2. XTANDI [Suspect]
     Active Substance: ENZALUTAMIDE
     Dosage: 2 CAPSULES ONCE DAILY AND OCCASIONALLY ONE CAPSULES PER DAY
     Route: 048
  3. LUPRON DEPOT [Concomitant]
     Active Substance: LEUPROLIDE ACETATE
     Indication: Prostate cancer metastatic
     Route: 065
  4. LUPRON DEPOT [Concomitant]
     Active Substance: LEUPROLIDE ACETATE
     Indication: Bone cancer
  5. XGEVA [Concomitant]
     Active Substance: DENOSUMAB
     Indication: Prostate cancer metastatic
     Route: 065
  6. XGEVA [Concomitant]
     Active Substance: DENOSUMAB
     Indication: Bone cancer

REACTIONS (4)
  - Back pain [Not Recovered/Not Resolved]
  - Restless legs syndrome [Recovered/Resolved]
  - Confusional state [Recovering/Resolving]
  - Fatigue [Recovering/Resolving]
